FAERS Safety Report 25962056 (Version 2)
Quarter: 2025Q4

REPORT INFORMATION
  Report Type: Spontaneous
  Country: EU (occurrence: EU)
  Receive Date: 20251027
  Receipt Date: 20251029
  Transmission Date: 20260118
  Serious: Yes (Hospitalization, Other)
  Sender: MYLAN
  Company Number: EU-RICHTER-2025-GR-012815

PATIENT
  Age: 63 Year
  Sex: Male

DRUGS (20)
  1. DABIGATRAN [Suspect]
     Active Substance: DABIGATRAN
     Indication: Acute myocardial infarction
     Dosage: 150 MILLIGRAM, BID (2 X/DAY)
  2. DABIGATRAN [Suspect]
     Active Substance: DABIGATRAN
     Dosage: 150 MILLIGRAM, BID (2 X/DAY)
     Route: 065
  3. DABIGATRAN [Suspect]
     Active Substance: DABIGATRAN
     Dosage: 150 MILLIGRAM, BID (2 X/DAY)
     Route: 065
  4. DABIGATRAN [Suspect]
     Active Substance: DABIGATRAN
     Dosage: 150 MILLIGRAM, BID (2 X/DAY)
  5. INDAPAMIDE [Suspect]
     Active Substance: INDAPAMIDE
     Indication: Acute myocardial infarction
     Dosage: UNK
  6. INDAPAMIDE [Suspect]
     Active Substance: INDAPAMIDE
     Dosage: UNK
     Route: 065
  7. INDAPAMIDE [Suspect]
     Active Substance: INDAPAMIDE
     Dosage: UNK
     Route: 065
  8. INDAPAMIDE [Suspect]
     Active Substance: INDAPAMIDE
     Dosage: UNK
  9. METFORMIN [Suspect]
     Active Substance: METFORMIN HYDROCHLORIDE
     Indication: Acute myocardial infarction
     Dosage: UNK
  10. METFORMIN [Suspect]
     Active Substance: METFORMIN HYDROCHLORIDE
     Dosage: UNK
     Route: 065
  11. METFORMIN [Suspect]
     Active Substance: METFORMIN HYDROCHLORIDE
     Dosage: UNK
     Route: 065
  12. METFORMIN [Suspect]
     Active Substance: METFORMIN HYDROCHLORIDE
     Dosage: UNK
  13. BISOPROLOL [Suspect]
     Active Substance: BISOPROLOL
     Indication: Acute myocardial infarction
     Dosage: UNK
  14. BISOPROLOL [Suspect]
     Active Substance: BISOPROLOL
     Dosage: UNK
     Route: 065
  15. BISOPROLOL [Suspect]
     Active Substance: BISOPROLOL
     Dosage: UNK
     Route: 065
  16. BISOPROLOL [Suspect]
     Active Substance: BISOPROLOL
     Dosage: UNK
  17. OPIPRAMOL [Suspect]
     Active Substance: OPIPRAMOL
     Indication: Acute myocardial infarction
     Dosage: UNK
  18. OPIPRAMOL [Suspect]
     Active Substance: OPIPRAMOL
     Dosage: UNK
     Route: 065
  19. OPIPRAMOL [Suspect]
     Active Substance: OPIPRAMOL
     Dosage: UNK
     Route: 065
  20. OPIPRAMOL [Suspect]
     Active Substance: OPIPRAMOL
     Dosage: UNK

REACTIONS (5)
  - Facial paralysis [Unknown]
  - Hemiplegia [Unknown]
  - Ischaemic stroke [Recovered/Resolved]
  - Inappropriate schedule of product administration [Unknown]
  - Product use in unapproved indication [Unknown]
